FAERS Safety Report 9160219 (Version 1)
Quarter: 2013Q1

REPORT INFORMATION
  Report Type: Spontaneous
  Country: US (occurrence: US)
  Receive Date: 20130313
  Receipt Date: 20130313
  Transmission Date: 20140127
  Serious: Yes (Other)
  Sender: FDA-Public Use
  Company Number: US-ROCHE-1200059

PATIENT
  Sex: Female

DRUGS (1)
  1. HERCEPTIN [Suspect]
     Indication: PRODUCT USED FOR UNKNOWN INDICATION
     Route: 065

REACTIONS (7)
  - Chills [Unknown]
  - Hypoaesthesia [Unknown]
  - Rash [Unknown]
  - Neck pain [Unknown]
  - Influenza like illness [Unknown]
  - Pain [Unknown]
  - Infusion related reaction [Unknown]
